FAERS Safety Report 5298500-8 (Version None)
Quarter: 2007Q2

REPORT INFORMATION
  Report Type: 
  Country: None (occurrence: None)
  Receive Date: 20070409
  Receipt Date: 20070402
  Transmission Date: 20071010
  Serious: Yes (Hospitalization)
  Sender: FDA-Public Use
  Company Number: 012119

PATIENT
  Age: 68 Year
  Sex: Female

DRUGS (6)
  1. TRAZODONE HCL [Suspect]
     Indication: SLEEP DISORDER THERAPY
     Dosage: 100 MG, QHS, ORAL
     Route: 048
     Dates: start: 20070101, end: 20070331
  2. NEXIUM [Concomitant]
  3. GABAPENTIN [Concomitant]
  4. DIOVAN [Concomitant]
  5. HYDROCHLOROTHIAZIDE [Concomitant]
  6. GLUCOTROL XL [Concomitant]

REACTIONS (5)
  - DIARRHOEA [None]
  - DIZZINESS [None]
  - LACTOSE INTOLERANCE [None]
  - PALPITATIONS [None]
  - VERTIGO [None]
